FAERS Safety Report 4914683-0 (Version None)
Quarter: 2006Q1

REPORT INFORMATION
  Report Type: 
  Country: None (occurrence: None)
  Receive Date: 20060216
  Receipt Date: 20050930
  Transmission Date: 20060701
  Serious: Yes (Death, Hospitalization)
  Sender: FDA-Public Use
  Company Number: US-MERCK-0510USA01949

PATIENT
  Age: 67 Year
  Sex: Male
  Weight: 70 kg

DRUGS (14)
  1. VIOXX [Suspect]
     Indication: RHEUMATOID ARTHRITIS
     Route: 048
     Dates: start: 19991109, end: 20000418
  2. ARAVA [Concomitant]
     Route: 065
  3. BIAXIN [Concomitant]
     Route: 065
  4. CELEBREX [Concomitant]
     Route: 065
  5. FOLIC ACID [Concomitant]
     Route: 065
  6. GLUCOPHAGE [Concomitant]
     Route: 065
  7. METHOTREXATE [Concomitant]
     Route: 065
  8. NEURONTIN [Concomitant]
     Route: 065
  9. PAXIL [Concomitant]
     Route: 065
  10. PLAQUENIL [Concomitant]
     Route: 065
  11. PREDNISONE [Concomitant]
     Route: 065
  12. RELAFEN [Concomitant]
     Route: 065
  13. VIAGRA [Concomitant]
     Route: 065
  14. VICODIN [Concomitant]
     Route: 065

REACTIONS (10)
  - BUNION [None]
  - CAROTID ARTERY STENOSIS [None]
  - CARPAL TUNNEL SYNDROME [None]
  - CEREBROVASCULAR ACCIDENT [None]
  - CORONARY ARTERY DISEASE [None]
  - DEPRESSION [None]
  - DIABETES MELLITUS NON-INSULIN-DEPENDENT [None]
  - EAR INFECTION [None]
  - ISCHAEMIC STROKE [None]
  - PNEUMONIA [None]
